FAERS Safety Report 25646833 (Version 1)
Quarter: 2025Q3

REPORT INFORMATION
  Report Type: Spontaneous
  Country: US (occurrence: US)
  Receive Date: 20250805
  Receipt Date: 20250805
  Transmission Date: 20251021
  Serious: No
  Sender: TEVA
  Company Number: US-TEVA-VS-3357341

PATIENT
  Age: 64 Year
  Sex: Female

DRUGS (2)
  1. LETROZOLE [Suspect]
     Active Substance: LETROZOLE
     Indication: Breast cancer
     Route: 048
  2. ELIGLUSTAT [Suspect]
     Active Substance: ELIGLUSTAT
     Indication: Gaucher^s disease
     Route: 048
     Dates: start: 20230320

REACTIONS (1)
  - Arthralgia [Not Recovered/Not Resolved]
